FAERS Safety Report 7441771-X (Version None)
Quarter: 2011Q2

REPORT INFORMATION
  Report Type: 
  Country: None (occurrence: None)
  Receive Date: 20110428
  Receipt Date: 20110415
  Transmission Date: 20111010
  Serious: Yes (Other)
  Sender: FDA-Public Use
  Company Number: US-AMGEN-USASP2011015745

PATIENT
  Age: 61 Year
  Sex: Male

DRUGS (1)
  1. ENBREL [Suspect]
     Indication: RHEUMATOID ARTHRITIS
     Dosage: 50 MG, QWK
     Dates: start: 20100309, end: 20110322

REACTIONS (7)
  - ANXIETY [None]
  - HEADACHE [None]
  - FEELING HOT [None]
  - JOINT SWELLING [None]
  - FLUSHING [None]
  - HEART RATE INCREASED [None]
  - NAUSEA [None]
